FAERS Safety Report 9196002 (Version 1)
Quarter: 2013Q1

REPORT INFORMATION
  Report Type: Spontaneous
  Country: US (occurrence: US)
  Receive Date: 20130328
  Receipt Date: 20130328
  Transmission Date: 20140127
  Serious: No
  Sender: FDA-Public Use
  Company Number: PHEH2013US007071

PATIENT
  Sex: Female

DRUGS (4)
  1. TASIGNA [Suspect]
  2. FLUOXETINE [Concomitant]
  3. VITAMIN [Concomitant]
  4. C-1000 [Concomitant]

REACTIONS (1)
  - Influenza like illness [Unknown]
